FAERS Safety Report 5245781-2 (Version None)
Quarter: 2007Q1

REPORT INFORMATION
  Report Type: 
  Country: None (occurrence: None)
  Receive Date: 20070216
  Receipt Date: 20070207
  Transmission Date: 20070707
  Serious: Yes (Other)
  Sender: FDA-Public Use
  Company Number: 010673

PATIENT
  Sex: Female

DRUGS (8)
  1. METOCLOPRAMIDE [Suspect]
     Dosage: SEE IMAGE, ORAL
     Route: 048
     Dates: start: 20030331, end: 20040615
  2. METOCLOPRAMIDE [Suspect]
     Dosage: SEE IMAGE, ORAL
     Route: 048
     Dates: start: 20040730, end: 20050930
  3. METOCLOPRAMIDE [Suspect]
     Dosage: SEE IMAGE, ORAL
     Route: 048
     Dates: start: 20051206, end: 20060301
  4. METOCLOPRAMIDE [Suspect]
     Dosage: SEE IMAGE, ORAL
     Route: 048
     Dates: start: 20030128
  5. REGLAN [Suspect]
     Dosage: SEE IMAGE, ORAL
     Route: 048
     Dates: start: 20030331, end: 20040615
  6. REGLAN [Suspect]
     Dosage: SEE IMAGE, ORAL
     Route: 048
     Dates: start: 20040730, end: 20050930
  7. REGLAN [Suspect]
     Dosage: SEE IMAGE, ORAL
     Route: 048
     Dates: start: 20051206, end: 20060301
  8. REGLAN [Suspect]
     Dosage: SEE IMAGE, ORAL
     Route: 048
     Dates: start: 20030128

REACTIONS (8)
  - CONDITION AGGRAVATED [None]
  - DYSARTHRIA [None]
  - DYSKINESIA [None]
  - DYSPHAGIA [None]
  - HYDROCEPHALUS [None]
  - INCORRECT DRUG ADMINISTRATION DURATION [None]
  - PARKINSON'S DISEASE [None]
  - TARDIVE DYSKINESIA [None]
